FAERS Safety Report 7089459-1 (Version None)
Quarter: 2010Q4

REPORT INFORMATION
  Report Type: 
  Country: None (occurrence: None)
  Receive Date: 20101108
  Receipt Date: 20101029
  Transmission Date: 20110411
  Serious: Yes (Death, Hospitalization)
  Sender: FDA-Public Use
  Company Number: TW-JNJFOC-20101100309

PATIENT
  Sex: Male

DRUGS (16)
  1. CRAVIT [Suspect]
     Indication: INFECTION
     Dosage: 250 MG/ BOT, 3 BOT/QD
     Route: 042
     Dates: start: 20100509, end: 20100517
  2. NEURONTIN [Suspect]
     Indication: TRIGEMINAL NEURALGIA
     Route: 048
  3. TEGRETOL [Suspect]
     Indication: TRIGEMINAL NEURALGIA
     Dosage: 0.5 TAB TID
     Route: 048
  4. TEGRETOL [Suspect]
     Dosage: 1 TAB TID
     Route: 048
  5. VISTARIL [Concomitant]
     Indication: RASH
     Route: 048
  6. CLOBETASOL PROPIONATE [Concomitant]
     Indication: RASH
     Route: 065
  7. PRIMPERAN [Concomitant]
     Route: 048
  8. ACETAMINOPHEN [Concomitant]
     Route: 048
  9. CEFMETAZOLE [Concomitant]
     Indication: PYREXIA
     Dosage: Q6H IVD
     Route: 042
  10. CEFOPERAZONE SODIUM [Concomitant]
     Indication: PYREXIA
     Dosage: Q12H IVD
     Route: 042
  11. CEFOPERAZONE SODIUM [Concomitant]
     Dosage: Q12H IVD
     Route: 042
  12. SULBACTAM [Concomitant]
     Dosage: 500 MG/VIAL, 2 VIALS
     Route: 042
  13. SULBACTAM [Concomitant]
     Dosage: 500 MG/VIAL, 2 VIALS
     Route: 042
  14. DIFLUCAN [Concomitant]
     Route: 048
  15. MEPEM [Concomitant]
     Route: 065
  16. TARGOCID [Concomitant]
     Route: 065

REACTIONS (6)
  - HYPOVOLAEMIC SHOCK [None]
  - INFECTION [None]
  - LOSS OF CONSCIOUSNESS [None]
  - RENAL INJURY [None]
  - SEPTIC SHOCK [None]
  - STEVENS-JOHNSON SYNDROME [None]
